FAERS Safety Report 7153583-5 (Version None)
Quarter: 2010Q4

REPORT INFORMATION
  Report Type: 
  Country: None (occurrence: None)
  Receive Date: 20101213
  Receipt Date: 20101203
  Transmission Date: 20110411
  Serious: Yes (Hospitalization)
  Sender: FDA-Public Use
  Company Number: ES-BRISTOL-MYERS SQUIBB COMPANY-15425374

PATIENT
  Age: 74 Year
  Sex: Male
  Weight: 63 kg

DRUGS (3)
  1. CISPLATIN [Suspect]
     Indication: NON-SMALL CELL LUNG CANCER STAGE IV
     Dosage: CYCLE 3
     Route: 065
     Dates: start: 20100907, end: 20101028
  2. NECITUMUMAB [Suspect]
     Indication: NON-SMALL CELL LUNG CANCER STAGE IV
     Dosage: LIQUID,CYCLE 3,INTERR BEFORE WITHDRAWN
     Route: 065
     Dates: start: 20100907, end: 20101028
  3. ALIMTA [Suspect]
     Indication: NON-SMALL CELL LUNG CANCER STAGE IV
     Dosage: VIAL;CYCLE 3
     Route: 065
     Dates: start: 20100907, end: 20101028

REACTIONS (1)
  - DIZZINESS POSTURAL [None]
